FAERS Safety Report 8792331 (Version 1)
Quarter: 2012Q4

REPORT INFORMATION
  Report Type: 
  Country: US (occurrence: US)
  Receive Date: 20120917
  Receipt Date: 20120917
  Transmission Date: 20130627
  Serious: Yes (Death, Life-Threatening, Other)
  Sender: FDA-Public Use
  Company Number: US-ROCHE-1127829

PATIENT
  Age: 64 Year
  Sex: Female

DRUGS (5)
  1. AVASTIN [Suspect]
     Indication: COLON CANCER METASTATIC
     Dosage: LAST TREATMENT WITH BEVACIZUMAB: 17 DEC 2010.
     Route: 065
  2. AVASTIN [Suspect]
     Indication: GASTRIC CANCER
  3. OXALIPLATIN [Concomitant]
  4. IRINOTECAN [Concomitant]
  5. FOLINIC ACID [Concomitant]

REACTIONS (3)
  - Death [Fatal]
  - Pulmonary hypertension [Not Recovered/Not Resolved]
  - Toxicity to various agents [Unknown]
